FAERS Safety Report 7150935-4 (Version None)
Quarter: 2010Q4

REPORT INFORMATION
  Report Type: 
  Country: None (occurrence: None)
  Receive Date: 20101210
  Receipt Date: 20101202
  Transmission Date: 20110411
  Serious: Yes (Other)
  Sender: FDA-Public Use
  Company Number: US-SANOFI-AVENTIS-2010SA073315

PATIENT
  Age: 47 Year
  Sex: Male

DRUGS (2)
  1. MULTAQ [Suspect]
     Route: 048
     Dates: start: 20100801, end: 20100801
  2. BETA BLOCKING AGENTS [Concomitant]

REACTIONS (1)
  - TORSADE DE POINTES [None]
